FAERS Safety Report 4577147-2 (Version None)
Quarter: 2005Q1

REPORT INFORMATION
  Report Type: 
  Country: None (occurrence: None)
  Receive Date: 20050210
  Receipt Date: 20050131
  Transmission Date: 20050727
  Serious: Yes (Hospitalization)
  Sender: FDA-Public Use
  Company Number: CH-ROCHE-394176

PATIENT
  Age: 59 Year
  Sex: Female
  Weight: 80 kg

DRUGS (3)
  1. LARIAM [Suspect]
     Indication: DRUG USE FOR UNKNOWN INDICATION
     Route: 048
     Dates: start: 20041101, end: 20041215
  2. ACTIVELLE [Suspect]
     Indication: MENOPAUSAL DISORDER
     Dosage: FREQUENCY REPORTED AS ^AS NECESSARY^
     Route: 048
  3. PRAVASTATIN SODIUM [Suspect]
     Indication: DRUG USE FOR UNKNOWN INDICATION
     Route: 048

REACTIONS (6)
  - ABDOMINAL PAIN [None]
  - CHROMATURIA [None]
  - JAUNDICE CHOLESTATIC [None]
  - NAUSEA [None]
  - PROTHROMBIN TIME PROLONGED [None]
  - TRANSAMINASES INCREASED [None]
